FAERS Safety Report 6523158-7 (Version None)
Quarter: 2009Q4

REPORT INFORMATION
  Report Type: 
  Country: None (occurrence: None)
  Receive Date: 20091222
  Receipt Date: 20091211
  Transmission Date: 20100525
  Serious: No
  Sender: FDA-Public Use
  Company Number: 2009AP005046

PATIENT
  Sex: Female

DRUGS (4)
  1. LAMOTRIGINE [Suspect]
     Dosage: TRPL
     Route: 064
  2. LEVETIRACETAM [Suspect]
     Dosage: TRPL
     Route: 064
  3. FOLIC ACID [Concomitant]
  4. LABETALOL HCL [Concomitant]

REACTIONS (2)
  - CENTRAL NERVOUS SYSTEM LESION [None]
  - EXOMPHALOS [None]
